FAERS Safety Report 5153294-1 (Version None)
Quarter: 2006Q4

REPORT INFORMATION
  Report Type: 
  Country: None (occurrence: None)
  Receive Date: 20061117
  Receipt Date: 20060912
  Transmission Date: 20070319
  Serious: Yes (Death, Life-Threatening, Hospitalization)
  Sender: FDA-Public Use
  Company Number: US-SANOFI-SYNTHELABO-F01200602323

PATIENT
  Sex: Male
  Weight: 79.5 kg

DRUGS (12)
  1. NEURONTIN [Concomitant]
  2. OXYCODONE HCL [Concomitant]
  3. SENNA [Concomitant]
  4. PAXIL [Concomitant]
  5. ALBUTEROL [Concomitant]
  6. TARCEVA [Concomitant]
  7. BEVACIZUMAB [Suspect]
     Route: 042
     Dates: start: 20060908, end: 20060908
  8. DOCETAXEL [Suspect]
     Route: 042
     Dates: start: 20060908, end: 20060908
  9. VICODIN [Concomitant]
  10. MIRALAX [Concomitant]
  11. ATIVAN [Concomitant]
  12. OXALIPLATIN [Suspect]
     Indication: LUNG NEOPLASM MALIGNANT
     Route: 042
     Dates: start: 20060908, end: 20060908

REACTIONS (3)
  - ABDOMINAL PAIN [None]
  - OESOPHAGEAL FISTULA [None]
  - PNEUMONIA [None]
